FAERS Safety Report 8519956-0 (Version None)
Quarter: 2012Q3

REPORT INFORMATION
  Report Type: 
  Country: None (occurrence: None)
  Receive Date: 20120719
  Receipt Date: 20120717
  Transmission Date: 20120928
  Serious: Yes (Death, Life-Threatening)
  Sender: FDA-Public Use
  Company Number: GB-SHIRE-ALL1-2012-03452

PATIENT
  Age: 76 Year
  Sex: Male

DRUGS (1)
  1. MESALAMINE [Suspect]
     Indication: INFLAMMATORY BOWEL DISEASE
     Dosage: UNK, UNKNOWN
     Route: 048

REACTIONS (4)
  - LOWER RESPIRATORY TRACT INFECTION [None]
  - NEUTROPENIA [None]
  - OFF LABEL USE [None]
  - NEUROLEPTIC MALIGNANT SYNDROME [None]
